FAERS Safety Report 10707966 (Version 1)
Quarter: 2015Q1

REPORT INFORMATION
  Report Type: Spontaneous
  Country: US (occurrence: US)
  Receive Date: 20150113
  Receipt Date: 20150113
  Transmission Date: 20150721
  Serious: No
  Sender: FDA-Public Use
  Company Number: US-BRISTOL-MYERS SQUIBB COMPANY-BMS-2014-006822

PATIENT
  Sex: Male

DRUGS (2)
  1. SPRYCEL [Suspect]
     Active Substance: DASATINIB
     Indication: PRODUCT USED FOR UNKNOWN INDICATION
     Dosage: UNK UNK,
     Route: 065
  2. SPRYCEL [Suspect]
     Active Substance: DASATINIB
     Dosage: 100 MG, QD
     Route: 065

REACTIONS (2)
  - Chills [Unknown]
  - Night sweats [Unknown]
